FAERS Safety Report 6221837-2 (Version None)
Quarter: 2009Q2

REPORT INFORMATION
  Report Type: 
  Country: None (occurrence: None)
  Receive Date: 20090609
  Receipt Date: 20090601
  Transmission Date: 20091009
  Serious: Yes (Hospitalization, Other)
  Sender: FDA-Public Use
  Company Number: CHPA2009US12950

PATIENT
  Age: 19 Year
  Sex: Female

DRUGS (2)
  1. DEXTROMETHORPHAN HYDROBROMIDE [Suspect]
  2. LAMOTRIGINE [Concomitant]

REACTIONS (9)
  - CONFUSIONAL STATE [None]
  - CONVULSION [None]
  - DRUG ABUSE [None]
  - FLAT AFFECT [None]
  - MEMORY IMPAIRMENT [None]
  - NYSTAGMUS [None]
  - TACHYCARDIA [None]
  - TONIC CLONIC MOVEMENTS [None]
  - TREMOR [None]
